FAERS Safety Report 6286043-4 (Version None)
Quarter: 2009Q3

REPORT INFORMATION
  Report Type: 
  Country: None (occurrence: None)
  Receive Date: 20090728
  Receipt Date: 20090720
  Transmission Date: 20100115
  Serious: Yes (Other)
  Sender: FDA-Public Use
  Company Number: DE-AMGEN-STX356663

PATIENT
  Sex: Female

DRUGS (1)
  1. MIMPARA [Suspect]
     Indication: HYPERPARATHYROIDISM PRIMARY
     Route: 065

REACTIONS (5)
  - ASTHENIA [None]
  - BONE NEOPLASM [None]
  - DECREASED APPETITE [None]
  - HIGH TURNOVER OSTEOPATHY [None]
  - MYALGIA [None]
